FAERS Safety Report 6621621-1 (Version None)
Quarter: 2010Q1

REPORT INFORMATION
  Report Type: 
  Country: None (occurrence: None)
  Receive Date: 20100223
  Receipt Date: 20091102
  Transmission Date: 20100710
  Serious: No
  Sender: FDA-Public Use
  Company Number: 8054259

PATIENT
  Sex: 0

DRUGS (1)
  1. CERTOLIZUMAB PEGO (UCB, INC) [Suspect]
     Indication: CROHN'S DISEASE
     Dosage: (400 MG, 1 SUBCUTANEOUS)
     Route: 058

REACTIONS (1)
  - INJECTION SITE RASH [None]
